FAERS Safety Report 17915701 (Version 1)
Quarter: 2020Q2

REPORT INFORMATION
  Report Type: Spontaneous
  Country: US (occurrence: US)
  Receive Date: 20200619
  Receipt Date: 20200619
  Transmission Date: 20200714
  Serious: No
  Sender: FDA-Public Use
  Company Number: US-ASTRAZENECA-2020SE77467

PATIENT
  Age: 584 Month
  Sex: Female

DRUGS (7)
  1. BUSPIRONE [Concomitant]
     Active Substance: BUSPIRONE HYDROCHLORIDE
     Route: 048
  2. ALBUTEROL HFA [Concomitant]
     Active Substance: ALBUTEROL SULFATE
     Route: 055
  3. BYDUREON BCISE [Suspect]
     Active Substance: EXENATIDE
     Route: 065
     Dates: start: 202006
  4. HYDRALAZINE [Concomitant]
     Active Substance: HYDRALAZINE HYDROCHLORIDE
     Route: 048
  5. GAPAPENTIN [Concomitant]
     Route: 048
  6. GAPAPENTIN [Concomitant]
     Route: 048
  7. FUROSEMIDE. [Concomitant]
     Active Substance: FUROSEMIDE
     Route: 048

REACTIONS (2)
  - Device malfunction [Unknown]
  - Injection site extravasation [Unknown]

NARRATIVE: CASE EVENT DATE: 202006
